FAERS Safety Report 6120373-1 (Version None)
Quarter: 2009Q1

REPORT INFORMATION
  Report Type: 
  Country: None (occurrence: None)
  Receive Date: 20090313
  Receipt Date: 20090313
  Transmission Date: 20090719
  Serious: No
  Sender: FDA-Public Use
  Company Number: None

PATIENT

DRUGS (3)
  1. AMOXICILLIN AND CLAVULANATE POTASSIUM [Suspect]
     Indication: EAR INFECTION
     Dosage: 1 TEASPOON (5ML) 3 TIMES DAY 2 DAYS
     Dates: start: 20090310
  2. AMOXICILLIN AND CLAVULANATE POTASSIUM [Suspect]
     Indication: EAR INFECTION
     Dosage: 1 TEASPOON (5ML) 3 TIMES DAY 2 DAYS
     Dates: start: 20090311
  3. AMOXICILLIN AND CLAVULANATE POTASSIUM [Suspect]
     Indication: EAR INFECTION
     Dosage: 1 TEASPOON (5ML) 3 TIMES DAY 2 DAYS
     Dates: start: 20090312

REACTIONS (5)
  - DIARRHOEA [None]
  - DRUG DISPENSING ERROR [None]
  - IRRITABILITY [None]
  - SWELLING FACE [None]
  - WRONG DRUG ADMINISTERED [None]
